FAERS Safety Report 6756740-2 (Version None)
Quarter: 2010Q2

REPORT INFORMATION
  Report Type: 
  Country: None (occurrence: None)
  Receive Date: 20100604
  Receipt Date: 20100601
  Transmission Date: 20101027
  Serious: Yes (Other)
  Sender: FDA-Public Use
  Company Number: FR-CEPHALON-2010003018

PATIENT
  Sex: Female

DRUGS (2)
  1. MODAFINIL [Suspect]
     Indication: HYPERSOMNIA
     Route: 048
  2. LEVOTHYROXINE SODIUM [Concomitant]

REACTIONS (1)
  - MACROCYTOSIS [None]
